FAERS Safety Report 8334379-5 (Version None)
Quarter: 2012Q2

REPORT INFORMATION
  Report Type: 
  Country: None (occurrence: None)
  Receive Date: 20120503
  Receipt Date: 20120425
  Transmission Date: 20120825
  Serious: Yes (Hospitalization)
  Sender: FDA-Public Use
  Company Number: US-ELI_LILLY_AND_COMPANY-US201204009182

PATIENT
  Sex: Male

DRUGS (21)
  1. VITAMIN C [Concomitant]
  2. TRACLEER [Concomitant]
  3. CLONIDINE [Concomitant]
  4. ASPIRIN [Concomitant]
     Dosage: 21 MG, UNK
  5. HYDROXYZINE [Concomitant]
  6. METOLAZONE [Concomitant]
  7. COLCHICINE [Concomitant]
  8. METOPROLOL TARTRATE [Concomitant]
  9. OMEPRAZOLE [Concomitant]
  10. ZEMPLAR [Concomitant]
  11. TRAMADOL HCL [Concomitant]
  12. ALLOPURINOL [Concomitant]
  13. CIPROFLOXACIN [Concomitant]
  14. DARBEPOETIN ALFA [Concomitant]
  15. IRON SULFATETHIAMIN COMPOUND TAB [Concomitant]
  16. DUONEB [Concomitant]
  17. LIDOCAINE [Concomitant]
     Route: 062
  18. NIFEDIPINE [Concomitant]
  19. PRAVACHOL [Concomitant]
  20. TORSEMIDE [Concomitant]
  21. CIALIS [Suspect]
     Indication: PULMONARY HYPERTENSION
     Dosage: 40 MG, QD

REACTIONS (1)
  - HOSPITALISATION [None]
